FAERS Safety Report 22643565 (Version 2)
Quarter: 2023Q4

REPORT INFORMATION
  Report Type: Spontaneous
  Country: US (occurrence: US)
  Receive Date: 20230627
  Receipt Date: 20231003
  Transmission Date: 20240109
  Serious: No
  Sender: FDA-Public Use
  Company Number: US-SA-SAC20230626000130

PATIENT
  Sex: Male

DRUGS (1)
  1. DUPIXENT [Suspect]
     Active Substance: DUPILUMAB
     Dosage: 300 MG, FREQUENCY: OTHER
     Route: 058

REACTIONS (8)
  - Periorbital swelling [Unknown]
  - Feeling drunk [Unknown]
  - Contrast media allergy [Unknown]
  - Heart rate increased [Unknown]
  - Swelling [Unknown]
  - Erythema [Unknown]
  - Urticaria [Unknown]
  - Eye irritation [Unknown]
